FAERS Safety Report 6368849-6 (Version None)
Quarter: 2009Q3

REPORT INFORMATION
  Report Type: 
  Country: None (occurrence: None)
  Receive Date: 20090922
  Receipt Date: 20090918
  Transmission Date: 20100115
  Serious: Yes (Death, Hospitalization, Other)
  Sender: FDA-Public Use
  Company Number: GB-WYE-G02764708

PATIENT
  Age: 82 Year
  Sex: Female

DRUGS (5)
  1. ADVIL [Suspect]
     Indication: INTENTIONAL OVERDOSE
     Dosage: UNKNOWN
     Route: 048
  2. CO-CODAMOL [Suspect]
     Indication: INTENTIONAL OVERDOSE
     Dosage: UNKNOWN
  3. CO-AMILOFRUSE [Suspect]
     Dosage: UNKNOWN
  4. ASPIRIN [Suspect]
     Dosage: UNKNOWN
  5. CALCICHEW-D3 FORTE [Suspect]
     Dosage: UNKNOWN

REACTIONS (8)
  - ALANINE AMINOTRANSFERASE INCREASED [None]
  - AORTIC ANEURYSM RUPTURE [None]
  - BLOOD ALKALINE PHOSPHATASE INCREASED [None]
  - HEPATOCELLULAR INJURY [None]
  - INTENTIONAL OVERDOSE [None]
  - PROTHROMBIN TIME PROLONGED [None]
  - SUICIDE ATTEMPT [None]
  - VASCULAR ANOMALY [None]
